FAERS Safety Report 7968178-0 (Version None)
Quarter: 2011Q4

REPORT INFORMATION
  Report Type: 
  Country: None (occurrence: None)
  Receive Date: 20111209
  Receipt Date: 20111202
  Transmission Date: 20120403
  Serious: Yes (Death, Life-Threatening, Other)
  Sender: FDA-Public Use
  Company Number: PHHY2011JP76032

PATIENT
  Sex: Female
  Weight: 45 kg

DRUGS (10)
  1. NITOROL R [Concomitant]
     Dosage: 40 MG, UNK
     Route: 048
     Dates: start: 20041122, end: 20110601
  2. VALSARTAN [Suspect]
     Dosage: 80 MG, QD
     Route: 048
     Dates: start: 20090628, end: 20110601
  3. OMEPRAZOLE [Concomitant]
     Dosage: 10 MG, UNK
     Route: 048
     Dates: start: 20080717, end: 20110601
  4. PROMACTA [Concomitant]
     Dosage: 150 MG, UNK
     Route: 048
     Dates: start: 20070526, end: 20110601
  5. NORVASC [Concomitant]
     Indication: HYPERTENSION
     Dosage: 10 MG, UNK
     Route: 048
     Dates: start: 20040331, end: 20110221
  6. CALCIUM CARBONATE [Concomitant]
     Dosage: 150 MG, UNK
     Route: 048
     Dates: start: 20080124, end: 20110601
  7. ADALAT [Concomitant]
     Indication: HYPERTENSION
     Dosage: 40 MG, UNK
     Route: 048
     Dates: start: 20060123, end: 20110221
  8. LASIX [Concomitant]
     Dosage: 120 MG, UNK
     Route: 048
     Dates: start: 20040331, end: 20110330
  9. FOSRENOL [Concomitant]
     Dosage: 500 MG, UNK
     Route: 048
     Dates: start: 20100130, end: 20100930
  10. DORNER [Concomitant]
     Dosage: 6 UG, UNK
     Route: 048
     Dates: start: 20071206, end: 20110601

REACTIONS (7)
  - SEPSIS [None]
  - GANGRENE [None]
  - BLOOD PRESSURE SYSTOLIC INCREASED [None]
  - INFECTION [None]
  - GENERAL PHYSICAL HEALTH DETERIORATION [None]
  - BLOOD PRESSURE DIASTOLIC DECREASED [None]
  - DIABETES MELLITUS [None]
